FAERS Safety Report 21447780 (Version 1)
Quarter: 2022Q4

REPORT INFORMATION
  Report Type: Spontaneous
  Country: US (occurrence: US)
  Receive Date: 20221012
  Receipt Date: 20221012
  Transmission Date: 20230113
  Serious: No
  Sender: FDA-Public Use
  Company Number: US-BRISTOL-MYERS SQUIBB COMPANY-2022-116779

PATIENT
  Age: 73 Year
  Sex: Male
  Weight: 113.39 kg

DRUGS (17)
  1. REVLIMID [Suspect]
     Active Substance: LENALIDOMIDE
     Indication: Plasma cell myeloma
     Dosage: 1 X 21 DAYS
     Route: 048
     Dates: start: 20220801, end: 20221004
  2. DEXAMETHASONE [Suspect]
     Active Substance: DEXAMETHASONE
     Indication: Product used for unknown indication
     Dosage: 4 MG ORAL WEEKLY
     Route: 048
     Dates: start: 20220729
  3. Tamsulosin HCL Oral capsule [Concomitant]
     Indication: Product used for unknown indication
     Dosage: 0.4 MG ORAL DAILY.
     Route: 048
  4. SIMVASTATIN [Concomitant]
     Active Substance: SIMVASTATIN
     Indication: Product used for unknown indication
     Dosage: 40 MG ORAL AT NIGHT
     Route: 048
  5. SM Aspirin low dose [Concomitant]
     Indication: Product used for unknown indication
     Dosage: 81 MG ORAL DAILY.
     Route: 048
  6. METHOCARBAMOL [Concomitant]
     Active Substance: METHOCARBAMOL
     Indication: Product used for unknown indication
     Dosage: 500 MG ORAL TWICE A DAY
     Route: 048
  7. METOPROLOL SUCCINATE [Concomitant]
     Active Substance: METOPROLOL SUCCINATE
     Indication: Product used for unknown indication
     Dosage: 25 MG ORAL DAILY
     Route: 048
     Dates: start: 20220729
  8. LOSARTAN POTASSIUM [Concomitant]
     Active Substance: LOSARTAN POTASSIUM
     Indication: Product used for unknown indication
     Dosage: 50 MG ORAL AT NIGHT
     Route: 048
     Dates: start: 20220729
  9. IRON [Concomitant]
     Active Substance: IRON
     Indication: Product used for unknown indication
     Dosage: 325 MG ORAL DAILY.
     Route: 048
     Dates: start: 20220729
  10. HYDROXYZINE HYDROCHLORIDE [Concomitant]
     Active Substance: HYDROXYZINE HYDROCHLORIDE
     Indication: Product used for unknown indication
     Dosage: 10 MG ORAL DAILY.
     Route: 048
     Dates: start: 20220729
  11. HYDROXYZINE HYDROCHLORIDE [Concomitant]
     Active Substance: HYDROXYZINE HYDROCHLORIDE
     Dosage: 25 MG ORAL DAILY.
     Route: 048
     Dates: start: 20220729
  12. GABAPENTIN [Concomitant]
     Active Substance: GABAPENTIN
     Indication: Product used for unknown indication
     Dosage: 300 MG ORAL TWICE A DAY. 1 PILL IN AM AND 3 PILL IN PM.
     Route: 048
     Dates: start: 20220729
  13. ACYCLOVIR [Concomitant]
     Active Substance: ACYCLOVIR
     Indication: Product used for unknown indication
     Dosage: 200 MG ORAL DAILY
     Route: 048
     Dates: start: 20220729
  14. VITAMIN B12 [Concomitant]
     Active Substance: CYANOCOBALAMIN
     Indication: Product used for unknown indication
     Dosage: 500 MCG ORAL DAILY
     Route: 048
     Dates: start: 20220729
  15. VENLAFAXINE HCL [Concomitant]
     Active Substance: VENLAFAXINE HYDROCHLORIDE
     Indication: Product used for unknown indication
     Dosage: 150 MG ORAL DAILY
     Route: 048
     Dates: start: 20220729
  16. VELCADE [Concomitant]
     Active Substance: BORTEZOMIB
     Indication: Product used for unknown indication
     Dosage: 3.5 MG
     Route: 065
     Dates: start: 20220729
  17. TRAZODONE HCL [Concomitant]
     Active Substance: TRAZODONE HYDROCHLORIDE
     Indication: Product used for unknown indication
     Dosage: 50 MG ORAL AT NIGHT
     Route: 048
     Dates: start: 20220729

REACTIONS (1)
  - Rash [Unknown]

NARRATIVE: CASE EVENT DATE: 20220825
